FAERS Safety Report 6832693-3 (Version None)
Quarter: 2010Q3

REPORT INFORMATION
  Report Type: 
  Country: None (occurrence: None)
  Receive Date: 20100712
  Receipt Date: 20070512
  Transmission Date: 20110219
  Serious: No
  Sender: FDA-Public Use
  Company Number: US-PFIZER INC-2007020146

PATIENT
  Sex: Female
  Weight: 49.4 kg

DRUGS (12)
  1. CHANTIX [Suspect]
     Indication: SMOKING CESSATION THERAPY
     Route: 048
     Dates: start: 20061221, end: 20070104
  2. ACTOS [Concomitant]
  3. EVISTA [Concomitant]
  4. CARTIA XT [Concomitant]
  5. ACETYLSALICYLIC ACID [Concomitant]
  6. CAPTOPRIL [Concomitant]
  7. VYTORIN [Concomitant]
  8. METFORMIN [Concomitant]
  9. NIASPAN [Concomitant]
  10. SPIRIVA [Concomitant]
  11. ALBUTEROL [Concomitant]
     Route: 055
  12. IPRATROPIUM [Concomitant]
     Route: 055

REACTIONS (1)
  - DRUG INEFFECTIVE [None]
